FAERS Safety Report 21928599 (Version 2)
Quarter: 2023Q1

REPORT INFORMATION
  Report Type: Spontaneous
  Country: US (occurrence: US)
  Receive Date: 20230130
  Receipt Date: 20230203
  Transmission Date: 20230417
  Serious: No
  Sender: FDA-Public Use
  Company Number: US-UNITED THERAPEUTICS-UNT-2023-002421

PATIENT
  Sex: Female

DRUGS (4)
  1. REMODULIN [Suspect]
     Active Substance: TREPROSTINIL
     Indication: Pulmonary arterial hypertension
     Dosage: 0.054 ?G/KG, CONTINUING
     Route: 058
  2. REMODULIN [Suspect]
     Active Substance: TREPROSTINIL
     Dosage: UNK, CONTINUING
     Route: 058
     Dates: start: 20210324
  3. TYLENOL [Suspect]
     Active Substance: ACETAMINOPHEN
     Indication: Infusion site pain
     Route: 065
  4. TYLENOL [Suspect]
     Active Substance: ACETAMINOPHEN
     Indication: Infusion site inflammation

REACTIONS (4)
  - Infusion site pain [Not Recovered/Not Resolved]
  - Infusion site inflammation [Unknown]
  - Therapy non-responder [Unknown]
  - Infusion site swelling [Not Recovered/Not Resolved]
